FAERS Safety Report 11062565 (Version 1)
Quarter: 2015Q2

REPORT INFORMATION
  Report Type: Spontaneous
  Country: CA (occurrence: CA)
  Receive Date: 20150424
  Receipt Date: 20150424
  Transmission Date: 20150821
  Serious: Yes (Hospitalization, Other)
  Sender: FDA-Public Use
  Company Number: CA-RECORDATI RARE DISEASES-CA-R13005-15-00042

PATIENT
  Age: 23 Year
  Sex: Female

DRUGS (5)
  1. DALTEPARIN [Concomitant]
     Active Substance: DALTEPARIN
     Indication: ANTICOAGULANT THERAPY
     Route: 065
  2. DACTINOMYCIN [Suspect]
     Active Substance: DACTINOMYCIN
     Indication: GESTATIONAL TROPHOBLASTIC TUMOUR
     Route: 065
  3. CISPLATIN. [Suspect]
     Active Substance: CISPLATIN
     Indication: RECURRENT CANCER
     Route: 065
  4. METHOTREXATE [Suspect]
     Active Substance: METHOTREXATE
     Indication: RECURRENT CANCER
     Dosage: HIGH-DOSE.
     Route: 065
  5. METHOTREXATE [Suspect]
     Active Substance: METHOTREXATE
     Indication: BENIGN HYDATIDIFORM MOLE
     Route: 065

REACTIONS (3)
  - Drug ineffective [Recovered/Resolved]
  - Atrial thrombosis [Recovered/Resolved]
  - Venous thrombosis [Recovered/Resolved]
